FAERS Safety Report 19420121 (Version 1)
Quarter: 2021Q2

REPORT INFORMATION
  Report Type: Spontaneous
  Country: FR (occurrence: FR)
  Receive Date: 20210615
  Receipt Date: 20210615
  Transmission Date: 20210717
  Serious: Yes (Disabling)
  Sender: FDA-Public Use
  Company Number: NVSC2021FR129197

PATIENT
  Age: 72 Year
  Sex: Female
  Weight: 63 kg

DRUGS (20)
  1. ENDOXAN [Suspect]
     Active Substance: CYCLOPHOSPHAMIDE
     Indication: PRODUCT USED FOR UNKNOWN INDICATION
     Dosage: 495 MG (ON DAY 1)
     Route: 065
     Dates: start: 20201222, end: 20201222
  2. ZELITREX [Concomitant]
     Active Substance: VALACYCLOVIR HYDROCHLORIDE
     Indication: PRODUCT USED FOR UNKNOWN INDICATION
     Dosage: UNK
     Route: 065
     Dates: start: 20201125
  3. INOTUZUMAB OZOGAMICIN [Suspect]
     Active Substance: INOTUZUMAB OZOGAMICIN
     Dosage: 0.83 MG (ON DAY 8)
     Route: 065
     Dates: start: 20201201, end: 20201201
  4. VINCRISTINE SULFATE. [Suspect]
     Active Substance: VINCRISTINE SULFATE
     Dosage: 2 MG (ON DAY 8)
     Route: 065
     Dates: start: 20201201, end: 20201201
  5. CYTARABINE. [Suspect]
     Active Substance: CYTARABINE
     Indication: PRODUCT USED FOR UNKNOWN INDICATION
     Dosage: 40 MG (ON DAY 2)
     Route: 065
     Dates: start: 20201125, end: 20201125
  6. ENDOXAN [Suspect]
     Active Substance: CYCLOPHOSPHAMIDE
     Dosage: 495 MG (ON DAY 3)
     Route: 065
     Dates: start: 20201224
  7. INOTUZUMAB OZOGAMICIN [Suspect]
     Active Substance: INOTUZUMAB OZOGAMICIN
     Indication: PRODUCT USED FOR UNKNOWN INDICATION
     Dosage: 1.31 MG (ON DAY 1)
     Route: 065
     Dates: start: 20201124, end: 20201124
  8. VINCRISTINE SULFATE. [Suspect]
     Active Substance: VINCRISTINE SULFATE
     Dosage: 2 MG (ON DAY 22)
     Route: 065
     Dates: start: 20201215
  9. FOLINORAL [Concomitant]
     Active Substance: LEUCOVORIN CALCIUM
     Indication: PRODUCT USED FOR UNKNOWN INDICATION
     Dosage: UNK
     Route: 065
     Dates: start: 20201125
  10. METHOTREXATE. [Suspect]
     Active Substance: METHOTREXATE
     Dosage: 15 MG (ON DAY 2)
     Route: 037
     Dates: start: 20201223
  11. ENDOXAN [Suspect]
     Active Substance: CYCLOPHOSPHAMIDE
     Dosage: 495 MG (ON DAY 2)
     Route: 065
     Dates: start: 20201223, end: 20201223
  12. INOTUZUMAB OZOGAMICIN [Suspect]
     Active Substance: INOTUZUMAB OZOGAMICIN
     Dosage: 0.83 MG (ON DAY 1)
     Route: 065
     Dates: start: 20201222, end: 20201222
  13. VINCRISTINE SULFATE. [Suspect]
     Active Substance: VINCRISTINE SULFATE
     Indication: PRODUCT USED FOR UNKNOWN INDICATION
     Dosage: 2 MG (ON DAY 1)
     Route: 065
     Dates: start: 20201124, end: 20201124
  14. INOTUZUMAB OZOGAMICIN [Suspect]
     Active Substance: INOTUZUMAB OZOGAMICIN
     Dosage: 0.83 MG (ON DAY 8)
     Route: 065
     Dates: start: 20201229
  15. METHOTREXATE. [Suspect]
     Active Substance: METHOTREXATE
     Indication: PRODUCT USED FOR UNKNOWN INDICATION
     Dosage: 15 MG (ON DAY 2)
     Route: 037
     Dates: start: 20201125, end: 20201125
  16. VINCRISTINE SULFATE. [Suspect]
     Active Substance: VINCRISTINE SULFATE
     Dosage: 2 MG (ON DAY 15)
     Route: 065
     Dates: start: 20201208, end: 20201208
  17. INOTUZUMAB OZOGAMICIN [Suspect]
     Active Substance: INOTUZUMAB OZOGAMICIN
     Dosage: 0.83 MG (ON DAY 15)
     Route: 065
     Dates: start: 20201208, end: 20201208
  18. ZARZIO [Concomitant]
     Active Substance: FILGRASTIM
     Indication: PRODUCT USED FOR UNKNOWN INDICATION
     Dosage: UNK
     Route: 065
     Dates: start: 20201230, end: 20210101
  19. CYTARABINE. [Suspect]
     Active Substance: CYTARABINE
     Dosage: 40 MG (ON DAY 2)
     Route: 065
     Dates: start: 20201223
  20. BACTRIM [Concomitant]
     Active Substance: SULFAMETHOXAZOLE\TRIMETHOPRIM
     Indication: PRODUCT USED FOR UNKNOWN INDICATION
     Dosage: UNK
     Route: 065
     Dates: start: 20201125

REACTIONS (1)
  - Neuropathy peripheral [Not Recovered/Not Resolved]

NARRATIVE: CASE EVENT DATE: 20201229
